FAERS Safety Report 18871015 (Version 1)
Quarter: 2021Q1

REPORT INFORMATION
  Report Type: Spontaneous
  Country: US (occurrence: US)
  Receive Date: 20210210
  Receipt Date: 20210210
  Transmission Date: 20210420
  Serious: No
  Sender: FDA-Public Use
  Company Number: US-SA-2021SA039197

PATIENT
  Age: 37 Year
  Sex: Female

DRUGS (1)
  1. DUPIXENT [Suspect]
     Active Substance: DUPILUMAB
     Indication: NASAL POLYPS
     Dosage: 300 MG (FREQUENCY: OTHER)
     Route: 058
     Dates: start: 202009

REACTIONS (3)
  - Condition aggravated [Not Recovered/Not Resolved]
  - Rash pruritic [Not Recovered/Not Resolved]
  - Dry skin [Not Recovered/Not Resolved]
